FAERS Safety Report 24853111 (Version 2)
Quarter: 2025Q3

REPORT INFORMATION
  Report Type: Spontaneous
  Country: EU (occurrence: EU)
  Receive Date: 20250117
  Receipt Date: 20250802
  Transmission Date: 20251020
  Serious: Yes (Other)
  Sender: ALEXION PHARMACEUTICALS
  Company Number: EU-ASTRAZENECA-202501EEA008391CZ

PATIENT
  Age: 78 Year
  Sex: Female

DRUGS (4)
  1. DURVALUMAB [Suspect]
     Active Substance: DURVALUMAB
     Indication: Small cell lung cancer extensive stage
     Dosage: FOR 4 CYCLES, Q3W
     Route: 065
     Dates: start: 202308
  2. DURVALUMAB [Suspect]
     Active Substance: DURVALUMAB
     Dosage: UNK, Q4W
     Route: 065
  3. CARBOPLATIN [Concomitant]
     Active Substance: CARBOPLATIN
     Indication: Small cell lung cancer extensive stage
     Dosage: FOR 4 CYCLES, Q3W
     Route: 065
     Dates: start: 202308
  4. ETOPOSIDE [Concomitant]
     Active Substance: ETOPOSIDE
     Indication: Small cell lung cancer extensive stage
     Dosage: FOR 4 CYCLES, Q3W
     Route: 065

REACTIONS (3)
  - Hyperthyroidism [Recovered/Resolved]
  - Hypothyroidism [Unknown]
  - Lower limb fracture [Unknown]
